FAERS Safety Report 7939158-6 (Version None)
Quarter: 2011Q4

REPORT INFORMATION
  Report Type: 
  Country: None (occurrence: None)
  Receive Date: 20111124
  Receipt Date: 20111114
  Transmission Date: 20120403
  Serious: Yes (Hospitalization)
  Sender: FDA-Public Use
  Company Number: GB-ROCHE-1013454

PATIENT
  Sex: Female

DRUGS (4)
  1. HERCEPTIN [Suspect]
     Indication: BREAST CANCER
     Route: 042
     Dates: start: 20111109
  2. DOCETAXEL [Suspect]
     Indication: BREAST CANCER
  3. CYCLOPHOSPHAMIDE [Suspect]
     Indication: BREAST CANCER
  4. PERTUZUMAB [Suspect]
     Indication: BREAST CANCER
     Route: 042
     Dates: start: 20111109

REACTIONS (3)
  - OROPHARYNGEAL PAIN [None]
  - RASH [None]
  - NAUSEA [None]
